FAERS Safety Report 10903862 (Version 1)
Quarter: 2015Q1

REPORT INFORMATION
  Report Type: Spontaneous
  Country: US (occurrence: None)
  Receive Date: 20150306
  Receipt Date: 20150306
  Transmission Date: 20150721
  Serious: Yes (Other)
  Sender: FDA-Public Use
  Company Number: DEP_02556_2015

PATIENT
  Sex: Male

DRUGS (3)
  1. GRALISE [Suspect]
     Active Substance: GABAPENTIN
     Indication: MULTIPLE SCLEROSIS
     Dosage: SAMPLE PACK, TITRATED UP TO 900 MG, ONCE DAILY ORAL
     Route: 048
     Dates: start: 20150219, end: 20150221
  2. GRALISE [Suspect]
     Active Substance: GABAPENTIN
     Indication: NEUROPATHY PERIPHERAL
     Dosage: SAMPLE PACK, TITRATED UP TO 900 MG, ONCE DAILY ORAL
     Route: 048
     Dates: start: 20150219, end: 20150221
  3. GRALISE [Suspect]
     Active Substance: GABAPENTIN
     Indication: OFF LABEL USE
     Dosage: SAMPLE PACK, TITRATED UP TO 900 MG, ONCE DAILY ORAL
     Route: 048
     Dates: start: 20150219, end: 20150221

REACTIONS (5)
  - Dizziness [None]
  - Mental disorder [None]
  - Product substitution issue [None]
  - Confusional state [None]
  - Feeling abnormal [None]

NARRATIVE: CASE EVENT DATE: 20150221
